FAERS Safety Report 4595743-3 (Version None)
Quarter: 2005Q1

REPORT INFORMATION
  Report Type: 
  Country: None (occurrence: None)
  Receive Date: 20050224
  Receipt Date: 20050222
  Transmission Date: 20050727
  Serious: Yes (Other)
  Sender: FDA-Public Use
  Company Number: 167-20785-05020054

PATIENT
  Age: 44 Year
  Sex: Female

DRUGS (7)
  1. THALIDOMIDE - PHARMION (THALIDOMIDE) (100 MILLIGRAM, CAPSULES) [Suspect]
     Indication: MULTIPLE MYELOMA
     Dosage: 100 MG DAILY, ORAL
     Route: 048
     Dates: start: 20041117
  2. CLODRONATE (CLODRONATE DISODIUM) [Concomitant]
  3. CYCLOPHOSPHAMIDE [Concomitant]
  4. DEXAMETHASONE [Concomitant]
  5. FLUCONAZOLE [Concomitant]
  6. LANSOPRAZOLE [Concomitant]
  7. MORPHINE SULFATE [Concomitant]

REACTIONS (1)
  - BLOOD HUMAN CHORIONIC GONADOTROPIN INCREASED [None]
